FAERS Safety Report 10621325 (Version 2)
Quarter: 2014Q4

REPORT INFORMATION
  Report Type: Report from Study
  Country: US (occurrence: US)
  Receive Date: 20141203
  Receipt Date: 20141216
  Transmission Date: 20150529
  Serious: Yes (Other)
  Sender: FDA-Public Use
  Company Number: US-BIOGENIDEC-2014BI122815

PATIENT
  Age: 42 Year
  Sex: Female
  Weight: 86 kg

DRUGS (8)
  1. MODAFINIL. [Concomitant]
     Active Substance: MODAFINIL
     Route: 048
  2. HYDROCHLOROTHIAZIDE. [Concomitant]
     Active Substance: HYDROCHLOROTHIAZIDE
  3. ACYCLOVIR. [Concomitant]
     Active Substance: ACYCLOVIR
  4. WELLBUTRIN XL [Concomitant]
     Active Substance: BUPROPION HYDROCHLORIDE
  5. RESTORIL [Concomitant]
     Active Substance: TEMAZEPAM
  6. TYSABRI [Suspect]
     Active Substance: NATALIZUMAB
     Indication: MULTIPLE SCLEROSIS
     Route: 042
     Dates: start: 20110630, end: 20140821
  7. LAMICTAL [Concomitant]
     Active Substance: LAMOTRIGINE
  8. ALPRAZOLAM. [Concomitant]
     Active Substance: ALPRAZOLAM

REACTIONS (6)
  - Hysterectomy [Unknown]
  - Vision blurred [Unknown]
  - Memory impairment [Unknown]
  - Haemorrhage [Unknown]
  - Sensory disturbance [Unknown]
  - Drug withdrawal convulsions [Unknown]

NARRATIVE: CASE EVENT DATE: 20141117
